FAERS Safety Report 21633613 (Version 8)
Quarter: 2023Q1

REPORT INFORMATION
  Report Type: Spontaneous
  Country: DE (occurrence: DE)
  Receive Date: 20221123
  Receipt Date: 20230202
  Transmission Date: 20230417
  Serious: Yes (Other)
  Sender: FDA-Public Use
  Company Number: DE-TORRENT-00023145

PATIENT
  Age: 29 Year
  Sex: Male

DRUGS (28)
  1. HYDROMORPHONE [Suspect]
     Active Substance: HYDROMORPHONE
     Indication: Pain
     Dosage: 16 MILLIGRAM, QD (24 HR GALENIC/24 HOURS)
     Route: 065
     Dates: start: 2017
  2. HYDROMORPHONE [Suspect]
     Active Substance: HYDROMORPHONE
     Indication: Analgesic therapy
  3. PREGABALIN [Suspect]
     Active Substance: PREGABALIN
     Indication: Pain
     Dosage: 150 MG IN THE MORNING AND IN THE EVENING
     Route: 065
     Dates: start: 2019
  4. PREGABALIN [Suspect]
     Active Substance: PREGABALIN
     Indication: Analgesic therapy
     Dosage: 50 MG,TID (THREE TIMES A DAY; 50-50-150 MG)
     Route: 065
     Dates: start: 2019
  5. PREGABALIN [Suspect]
     Active Substance: PREGABALIN
     Dosage: PREGABALIN THREE TIMES A DAY
     Route: 065
  6. PREGABALIN [Suspect]
     Active Substance: PREGABALIN
     Dosage: 300 MILLIGRAM, QD
     Route: 065
  7. OXYCODONE [Suspect]
     Active Substance: OXYCODONE
     Indication: Analgesic therapy
     Dosage: ORAL OPIOID THERAPY PROLONGED-RELEASE30-30-40 MG
     Route: 048
  8. OXYCODONE [Suspect]
     Active Substance: OXYCODONE
     Indication: Pain
     Dosage: 100 MILLIGRAM, Q8H
     Route: 048
  9. OXYCODONE [Suspect]
     Active Substance: OXYCODONE
     Dosage: (30-30-40 MG)
     Route: 048
  10. AMITRIPTYLINE [Suspect]
     Active Substance: AMITRIPTYLINE
     Indication: Pain
     Dosage: 25 MG AMITRIPTYLINE AT NIGHT
     Route: 065
  11. AMITRIPTYLINE [Suspect]
     Active Substance: AMITRIPTYLINE
     Indication: Analgesic therapy
  12. DICLOFENAC [Suspect]
     Active Substance: DICLOFENAC
     Indication: Bone pain
     Dosage: NON-STEROIDAL ANTI-INFLAMMATORY DRUG DICLOFENAC
     Route: 065
  13. DICLOFENAC [Suspect]
     Active Substance: DICLOFENAC
     Dosage: UNK
     Route: 065
  14. ZOLEDRONIC ACID [Suspect]
     Active Substance: ZOLEDRONIC ACID
     Indication: Pain
     Dosage: Q28D (I.V. EVERY FOUR WEEKS)
     Route: 042
  15. ZOLEDRONIC ACID [Suspect]
     Active Substance: ZOLEDRONIC ACID
     Indication: Analgesic therapy
     Dosage: UNK
     Route: 065
     Dates: start: 2021
  16. LENALIDOMIDE [Suspect]
     Active Substance: LENALIDOMIDE
     Indication: Immunomodulatory therapy
     Dosage: 300 MG, QD
     Route: 065
     Dates: start: 2021
  17. LENALIDOMIDE [Suspect]
     Active Substance: LENALIDOMIDE
     Dosage: UNKNOWN
     Route: 065
     Dates: start: 2021
  18. IBUPROFEN [Suspect]
     Active Substance: IBUPROFEN
     Indication: Bone pain
     Dosage: UNKNOWN DOSAGE WHENEVER AFFLICTED WITH BONE PAIN
     Route: 065
     Dates: start: 2016
  19. IBUPROFEN [Suspect]
     Active Substance: IBUPROFEN
     Dosage: NON-STEROIDAL ANTI-INFLAMMATORY DRUG IBUPROFEN
     Route: 065
  20. IBUPROFEN [Suspect]
     Active Substance: IBUPROFEN
     Dosage: FROM://2016 TO: WHENEVER AFFLICTED WITH BONE
     Route: 065
  21. HERBALS\TETRAHYDROCANNABINOL UNSPECIFIED [Suspect]
     Active Substance: HERBALS\TETRAHYDROCANNABINOL UNSPECIFIED
     Indication: Pain
     Dosage: QD (2.5-2.5-7.5 MG)
     Route: 048
  22. HERBALS\TETRAHYDROCANNABINOL UNSPECIFIED [Suspect]
     Active Substance: HERBALS\TETRAHYDROCANNABINOL UNSPECIFIED
     Dosage: 2.5 MG PER GRAM (2.5-2.5-7.5 MG)
     Route: 048
     Dates: start: 2020
  23. HERBALS\TETRAHYDROCANNABINOL UNSPECIFIED [Suspect]
     Active Substance: HERBALS\TETRAHYDROCANNABINOL UNSPECIFIED
     Dosage: A DAILY DOSE OF 2.5-2.5-7.5 MG THC 10 ADMIN
     Route: 048
     Dates: start: 2022
  24. AMBROXOL [Suspect]
     Active Substance: AMBROXOL
     Indication: Pain
     Dosage: CREAM CONTAINING 20% AMBROXOL
     Route: 065
     Dates: start: 2019
  25. AMBROXOL [Suspect]
     Active Substance: AMBROXOL
     Indication: Arthralgia
     Dosage: UNK
     Route: 065
  26. AMBROXOL [Suspect]
     Active Substance: AMBROXOL
     Dosage: CREAM CONTAINING 20% AMBROXOL
     Route: 065
     Dates: end: 2019
  27. MORPHINE [Suspect]
     Active Substance: MORPHINE
     Indication: Pain
     Dosage: ORAL OPIOID THERAPY/ 10 MG/6 AND 8 TIMES DAILY
     Route: 048
  28. VITAMIN D [Concomitant]
     Active Substance: VITAMIN D NOS
     Indication: Product used for unknown indication
     Dosage: 2000IU,QD(2000 IU VITAMIN D/DAY)
     Route: 065

REACTIONS (10)
  - Neoplasm progression [Not Recovered/Not Resolved]
  - Metastasis [Unknown]
  - Sleep disorder [Recovered/Resolved]
  - Depression [Recovered/Resolved]
  - Decreased appetite [Recovered/Resolved]
  - Condition aggravated [Recovered/Resolved]
  - Poor quality sleep [Recovered/Resolved]
  - Somnolence [Recovered/Resolved]
  - Fatigue [Not Recovered/Not Resolved]
  - Drug ineffective [Unknown]

NARRATIVE: CASE EVENT DATE: 20170101
